FAERS Safety Report 9700722 (Version 1)
Quarter: 2013Q4

REPORT INFORMATION
  Report Type: Spontaneous
  Country: US (occurrence: US)
  Receive Date: 20131121
  Receipt Date: 20131121
  Transmission Date: 20140711
  Serious: No
  Sender: FDA-Public Use
  Company Number: US-PFIZER INC-2013330326

PATIENT
  Age: 75 Year
  Sex: Male
  Weight: 113 kg

DRUGS (2)
  1. VIAGRA [Suspect]
     Indication: ERECTILE DYSFUNCTION
     Dosage: 25 MG, UNK
     Route: 048
     Dates: start: 20131112
  2. XARELTO [Concomitant]
     Indication: ANTICOAGULANT THERAPY
     Dosage: 20 MG, UNK

REACTIONS (1)
  - Drug ineffective [Unknown]
